FAERS Safety Report 17860438 (Version 6)
Quarter: 2020Q4

REPORT INFORMATION
  Report Type: Report from Study
  Country: GB (occurrence: GB)
  Receive Date: 20200604
  Receipt Date: 20201008
  Transmission Date: 20210113
  Serious: Yes (Hospitalization)
  Sender: FDA-Public Use
  Company Number: GB-CELGENEUS-GBR-20200600559

PATIENT
  Age: 69 Year
  Sex: Male
  Weight: 76 kg

DRUGS (9)
  1. PARACETAMOL [Concomitant]
     Active Substance: ACETAMINOPHEN
     Indication: ANALGESIC THERAPY
     Dosage: 500 MG X PRN
     Route: 048
  2. FEDRATINIB [Suspect]
     Active Substance: FEDRATINIB
     Dosage: 200 MG X 1 X 1 DAYS
     Route: 048
     Dates: start: 20200120, end: 20200526
  3. ATROVASTATIN [Concomitant]
     Active Substance: ATORVASTATIN CALCIUM
     Indication: HYPERLIPIDAEMIA
     Dosage: 40 MG X 1 X 1 DAYS
     Route: 048
     Dates: start: 201303, end: 20200117
  4. RAMIPRIL. [Concomitant]
     Active Substance: RAMIPRIL
     Indication: HYPERTENSION
     Dosage: 5 MG X 1 X 1 DAYS
     Route: 048
     Dates: start: 200807
  5. RANITIDINE. [Concomitant]
     Active Substance: RANITIDINE
     Indication: HIATUS HERNIA
     Dosage: 300 MG X 1 X 1 DAYS
     Route: 048
     Dates: start: 2015, end: 20200114
  6. ALLOPURINOL. [Concomitant]
     Active Substance: ALLOPURINOL
     Indication: OEDEMA PERIPHERAL
     Dosage: 100 MG X 1 X 1 DAYS
     Route: 048
     Dates: start: 20200528
  7. FEXOFENADINE [Concomitant]
     Active Substance: FEXOFENADINE HYDROCHLORIDE
     Indication: PRURITUS
     Dosage: 180 MG X 1 X 1 DAYS
     Route: 048
     Dates: start: 201911, end: 20191222
  8. RANITIDINE. [Concomitant]
     Active Substance: RANITIDINE
     Indication: HIATUS HERNIA
     Dosage: 150 MG X 1 X 1 DAYS
     Route: 048
     Dates: start: 20200120
  9. FEDRATINIB [Suspect]
     Active Substance: FEDRATINIB
     Indication: PRIMARY MYELOFIBROSIS
     Dosage: 400 MG X 1 X 1 DAYS
     Route: 048
     Dates: start: 20191219, end: 20200114

REACTIONS (4)
  - Leukocytosis [Recovered/Resolved]
  - Oedema peripheral [Not Recovered/Not Resolved]
  - Chronic kidney disease [Recovered/Resolved]
  - Ejection fraction decreased [Not Recovered/Not Resolved]

NARRATIVE: CASE EVENT DATE: 20200514
